FAERS Safety Report 23506020 (Version 1)
Quarter: 2024Q1

REPORT INFORMATION
  Report Type: Spontaneous
  Country: FR (occurrence: FR)
  Receive Date: 20240209
  Receipt Date: 20240209
  Transmission Date: 20240409
  Serious: Yes (Other)
  Sender: FDA-Public Use
  Company Number: None

PATIENT
  Age: 12 Year
  Sex: Female
  Weight: 48 kg

DRUGS (7)
  1. ISONIAZID [Suspect]
     Active Substance: ISONIAZID
     Indication: Bone tuberculosis
     Dosage: 600 MG, QD (15 MG/KG/J)
     Route: 048
     Dates: start: 20230428, end: 20230513
  2. ISONIAZID [Suspect]
     Active Substance: ISONIAZID
     Dosage: 600 MG, 1X (15 MG/KG/J)
     Route: 048
     Dates: start: 20230603, end: 20240112
  3. RIFAMPIN [Suspect]
     Active Substance: RIFAMPIN
     Indication: Bone tuberculosis
     Dosage: 450 MG, QD (10 MG/KG/J)
     Route: 048
     Dates: start: 20230428, end: 20230513
  4. RIFAMPIN [Suspect]
     Active Substance: RIFAMPIN
     Dosage: 288 MG, 1X (6 MG/KG/J)
     Route: 048
     Dates: start: 20231117, end: 20240112
  5. RIFAMPIN [Suspect]
     Active Substance: RIFAMPIN
     Dosage: 400 MG, 1X (10 MG/KG/J)
     Route: 048
     Dates: start: 20230603, end: 20231117
  6. ACETAMINOPHEN [Concomitant]
     Active Substance: ACETAMINOPHEN
     Indication: Analgesic intervention supportive therapy
     Dosage: UNK (IN CASE OF PAIN)
     Dates: start: 20230429
  7. PYRAZINAMIDE [Concomitant]
     Active Substance: PYRAZINAMIDE
     Indication: Product used for unknown indication
     Dosage: UNK

REACTIONS (1)
  - Hepatic cytolysis [Recovering/Resolving]

NARRATIVE: CASE EVENT DATE: 20230513
